FAERS Safety Report 11286860 (Version 2)
Quarter: 2015Q3

REPORT INFORMATION
  Report Type: Report from Study
  Country: US (occurrence: US)
  Receive Date: 20150721
  Receipt Date: 20150727
  Transmission Date: 20151125
  Serious: Yes (Hospitalization)
  Sender: FDA-Public Use
  Company Number: US-ROCHE-1607042

PATIENT
  Age: 70 Year
  Sex: Male

DRUGS (3)
  1. BEVACIZUMAB [Suspect]
     Active Substance: BEVACIZUMAB
     Indication: GLIOBLASTOMA MULTIFORME
     Route: 042
     Dates: start: 20140619, end: 20140703
  2. LISINOPRIL. [Concomitant]
     Active Substance: LISINOPRIL
  3. CLONIDINE. [Concomitant]
     Active Substance: CLONIDINE

REACTIONS (6)
  - Encephalopathy [Recovered/Resolved]
  - Proteinuria [Not Recovered/Not Resolved]
  - Hypertension [Not Recovered/Not Resolved]
  - Vomiting [Recovered/Resolved]
  - Headache [Recovered/Resolved]
  - Nausea [Recovered/Resolved]

NARRATIVE: CASE EVENT DATE: 20140705
